FAERS Safety Report 4371214-4 (Version None)
Quarter: 2004Q2

REPORT INFORMATION
  Report Type: 
  Country: None (occurrence: None)
  Receive Date: 20040604
  Receipt Date: 20040525
  Transmission Date: 20050107
  Serious: Yes (Other)
  Sender: FDA-Public Use
  Company Number: US-ROCHE-369165

PATIENT
  Age: 53 Year
  Sex: Female

DRUGS (2)
  1. PEGASYS [Suspect]
     Indication: DRUG USE FOR UNKNOWN INDICATION
     Route: 065
     Dates: start: 20040430
  2. COPEGUS [Suspect]
     Indication: DRUG USE FOR UNKNOWN INDICATION
     Route: 065
     Dates: start: 20040430

REACTIONS (6)
  - COUGH [None]
  - DEAFNESS [None]
  - INFLUENZA LIKE ILLNESS [None]
  - OTORRHOEA [None]
  - UTERINE HAEMORRHAGE [None]
  - WEIGHT DECREASED [None]
